FAERS Safety Report 5673895-1 (Version None)
Quarter: 2008Q2

REPORT INFORMATION
  Report Type: 
  Country: None (occurrence: None)
  Receive Date: 20080226
  Receipt Date: 20071205
  Transmission Date: 20081010
  Serious: Yes (Other)
  Sender: FDA-Public Use
  Company Number: 535597

PATIENT
  Age: 24 Year
  Sex: Female
  Weight: 72.6 kg

DRUGS (2)
  1. ACCUTANE [Suspect]
     Indication: DRUG USE FOR UNKNOWN INDICATION
     Dosage: 40 MG DAILY ORAL
     Route: 048
     Dates: start: 20060105, end: 20060915
  2. BIRTH CONTROL PILL (ORAL CONTRACEPTIVE NOS) [Concomitant]

REACTIONS (1)
  - BLOOD TRIGLYCERIDES INCREASED [None]
